FAERS Safety Report 5491144-4 (Version None)
Quarter: 2007Q4

REPORT INFORMATION
  Report Type: 
  Country: None (occurrence: None)
  Receive Date: 20071019
  Receipt Date: 20071010
  Transmission Date: 20080405
  Serious: Yes (Hospitalization)
  Sender: FDA-Public Use
  Company Number: CH-PFIZER INC-2007084510

PATIENT
  Sex: Female

DRUGS (1)
  1. CELECOXIB [Suspect]
     Indication: OSTEOARTHRITIS
     Route: 048

REACTIONS (5)
  - FACE OEDEMA [None]
  - HEPATITIS [None]
  - HYPERSENSITIVITY [None]
  - JAUNDICE [None]
  - MUCOSAL INFLAMMATION [None]
